FAERS Safety Report 9342562 (Version 1)
Quarter: 2013Q2

REPORT INFORMATION
  Report Type: Spontaneous
  Country: US (occurrence: US)
  Receive Date: 20130611
  Receipt Date: 20130611
  Transmission Date: 20140414
  Serious: No
  Sender: FDA-Public Use
  Company Number: US-009507513-1306USA003075

PATIENT
  Sex: Female

DRUGS (6)
  1. SAPHRIS [Suspect]
     Indication: BIPOLAR DISORDER
     Dosage: 5 MG, QD
     Route: 060
  2. SAPHRIS [Suspect]
     Dosage: 5 MG, QD
     Route: 060
  3. SAPHRIS [Suspect]
     Dosage: 15 MG, QD
     Route: 060
  4. LITHIUM [Concomitant]
  5. LEXAPRO [Concomitant]
  6. LAMICTAL [Concomitant]

REACTIONS (5)
  - Oedema [Unknown]
  - Feeling abnormal [Unknown]
  - Restlessness [Unknown]
  - Akathisia [Unknown]
  - Incorrect dose administered [Unknown]
